FAERS Safety Report 7971238-1 (Version None)
Quarter: 2011Q4

REPORT INFORMATION
  Report Type: 
  Country: None (occurrence: None)
  Receive Date: 20111212
  Receipt Date: 20111206
  Transmission Date: 20120403
  Serious: Yes (Other)
  Sender: FDA-Public Use
  Company Number: US-PFIZER INC-2011298459

PATIENT
  Sex: Female
  Weight: 72.562 kg

DRUGS (8)
  1. EFFEXOR XR [Suspect]
     Indication: ANXIETY
     Dosage: 75 MG, DAILIY
  2. ACETAMINOPHEN [Suspect]
     Indication: HEADACHE
     Dosage: UNK
  3. SOMA [Concomitant]
     Indication: SLEEP DISORDER
     Dosage: UNK
  4. IBUPROFEN [Suspect]
     Indication: HEADACHE
     Dosage: UNK
  5. LISINOPRIL [Concomitant]
     Indication: HYPERTENSION
     Dosage: UNK
  6. NEXIUM [Concomitant]
     Dosage: UNK
  7. PROMETHAZINE HCL [Suspect]
     Indication: MALAISE
     Dosage: UNK
  8. KLONOPIN [Concomitant]
     Indication: ANXIETY
     Dosage: 1 MG, UNK

REACTIONS (2)
  - MALAISE [None]
  - ACTIVITIES OF DAILY LIVING IMPAIRED [None]
